FAERS Safety Report 19420086 (Version 1)
Quarter: 2021Q2

REPORT INFORMATION
  Report Type: Spontaneous
  Country: BR (occurrence: BR)
  Receive Date: 20210615
  Receipt Date: 20210615
  Transmission Date: 20210717
  Serious: Yes (Death, Other)
  Sender: FDA-Public Use
  Company Number: BR-BIOMARINAP-BR-2021-137007

PATIENT
  Sex: Female
  Weight: 16 kg

DRUGS (1)
  1. NAGLAZYME [Suspect]
     Active Substance: GALSULFASE
     Indication: MUCOPOLYSACCHARIDOSIS VI
     Dosage: 20 MILLIGRAM, QW
     Route: 042
     Dates: start: 20140318

REACTIONS (5)
  - Cardio-respiratory arrest [Unknown]
  - Disease progression [Unknown]
  - Oxygen saturation decreased [Unknown]
  - Acute respiratory failure [Fatal]
  - Dyspnoea [Unknown]
